FAERS Safety Report 14297807 (Version 4)
Quarter: 2018Q1

REPORT INFORMATION
  Report Type: Spontaneous
  Country: US (occurrence: US)
  Receive Date: 20171218
  Receipt Date: 20180112
  Transmission Date: 20180509
  Serious: Yes (Death, Other)
  Sender: FDA-Public Use
  Company Number: US-PFIZER INC-2017534122

PATIENT
  Age: 71 Year
  Sex: Male
  Weight: 73 kg

DRUGS (12)
  1. METHYLPREDNISOLONE. [Concomitant]
     Active Substance: METHYLPREDNISOLONE
     Dosage: 4 MG, UNK
     Dates: start: 20170424
  2. BROMPHEN DX [Concomitant]
     Indication: COUGH
     Dosage: 10 ML, UNK (EVERY 6 HOURS)
     Dates: start: 20170424
  3. ATROPINE SULFATE/DIPHENOXYLATE HYDROCHLORIDE [Suspect]
     Active Substance: ATROPINE SULFATE\DIPHENOXYLATE HYDROCHLORIDE
     Indication: DIARRHOEA
     Dosage: 1 DF (ALSO REPORTED AS ^10 DRAM^) , 3X/DAY
     Route: 048
     Dates: start: 20170429
  4. TRAZODONE [Concomitant]
     Active Substance: TRAZODONE HYDROCHLORIDE
     Dosage: 50 MG, UNK
     Dates: start: 20170428
  5. DIPHENHYDRAMINE W/PSEUDOEPHEDRINE [Concomitant]
     Active Substance: DIPHENHYDRAMINE\PSEUDOEPHEDRINE
     Indication: COUGH
     Dosage: 10 ML, AS NEEDED
     Route: 048
     Dates: start: 20170424
  6. PROAIR HFA [Concomitant]
     Active Substance: ALBUTEROL SULFATE
     Indication: WHEEZING
     Dosage: 90 UG, AS NEEDED
     Dates: start: 20170424
  7. KAOPECTATE REGULAR STRENGTH CHERRY FLAVOR [Concomitant]
     Active Substance: BISMUTH SUBSALICYLATE
     Indication: DIARRHOEA
     Dosage: UNK
     Dates: end: 20170424
  8. HYDROCHLOROTHIAZIDE. [Concomitant]
     Active Substance: HYDROCHLOROTHIAZIDE
     Dosage: 25 MG, UNK (25MG (DATE: 24APR2017) 1/2 TABLET A DAY- 2 DAYS LATER WE INCREASED TO 1 TABLET )
     Dates: start: 20170426
  9. ATORVASTATIN [Concomitant]
     Active Substance: ATORVASTATIN
     Dosage: 10 MG, UNK
     Dates: start: 20170428
  10. HYDROCHLOROTHIAZIDE. [Concomitant]
     Active Substance: HYDROCHLOROTHIAZIDE
     Dosage: 12.5 MG, DAILY
     Dates: start: 20170424, end: 20170501
  11. AZITHROMYCIN ANHYDROUS. [Concomitant]
     Active Substance: AZITHROMYCIN ANHYDROUS
     Dosage: 500 MG, 1X/DAY
     Dates: start: 20170424
  12. IMODIUM AD [Concomitant]
     Active Substance: LOPERAMIDE HYDROCHLORIDE
     Indication: DIARRHOEA

REACTIONS (3)
  - Myocardial infarction [Fatal]
  - Diarrhoea [Fatal]
  - Condition aggravated [Fatal]

NARRATIVE: CASE EVENT DATE: 20170502
